FAERS Safety Report 17802531 (Version 1)
Quarter: 2020Q2

REPORT INFORMATION
  Report Type: Spontaneous
  Country: US (occurrence: US)
  Receive Date: 20200518
  Receipt Date: 20200518
  Transmission Date: 20200714
  Serious: Yes (Hospitalization)
  Sender: FDA-Public Use
  Company Number: None

PATIENT
  Age: 33 Year
  Sex: Female

DRUGS (1)
  1. TOBRAMYCIN  300MG NEB [Suspect]
     Active Substance: TOBRAMYCIN
     Indication: PRODUCT USED FOR UNKNOWN INDICATION
     Dosage: ?          OTHER ROUTE:NEUBLIZER?

REACTIONS (4)
  - Pneumonia [None]
  - Asthma [None]
  - Condition aggravated [None]
  - Dyspnoea [None]

NARRATIVE: CASE EVENT DATE: 20200507
